FAERS Safety Report 13181995 (Version 1)
Quarter: 2017Q1

REPORT INFORMATION
  Report Type: Spontaneous
  Country: US (occurrence: US)
  Receive Date: 20170202
  Receipt Date: 20170202
  Transmission Date: 20170428
  Serious: No
  Sender: FDA-Public Use
  Company Number: US-IMPAX LABORATORIES, INC-2016-IPXL-02463

PATIENT
  Age: 63 Year
  Sex: Female

DRUGS (6)
  1. DIAZEPAM. [Concomitant]
     Active Substance: DIAZEPAM
     Indication: SLEEP DISORDER
  2. ESTRADIOL. [Concomitant]
     Active Substance: ESTRADIOL
     Indication: MENOPAUSE
     Dosage: 0.5 MG, 1 /DAY
     Route: 048
  3. RYTARY [Suspect]
     Active Substance: CARBIDOPA\LEVODOPA
     Indication: PARKINSON^S DISEASE
     Dosage: 36.25/145 MG, 1 CAPSULE, TID
     Route: 048
     Dates: start: 201610, end: 20161224
  4. AZILECT [Concomitant]
     Active Substance: RASAGILINE MESYLATE
     Indication: PARKINSON^S DISEASE
     Dosage: 1 MG TABLET
     Route: 048
  5. JOLIVETTE [Concomitant]
     Active Substance: NORETHINDRONE
     Indication: MENOPAUSE
     Dosage: 0.35 MG, 1 /DAY. ONE TABLET  FOR DAYS 1 THROUGH 10 FOR EACH MONTH
     Route: 065
  6. DIAZEPAM. [Concomitant]
     Active Substance: DIAZEPAM
     Indication: ANXIETY
     Dosage: UNK, 1 /WEEK, HALF TABLET
     Route: 065

REACTIONS (3)
  - Tremor [Recovering/Resolving]
  - Abnormal dreams [Unknown]
  - Drug effect delayed [Unknown]
